FAERS Safety Report 16056064 (Version 1)
Quarter: 2019Q2

REPORT INFORMATION
  Report Type: Spontaneous
  Country: US (occurrence: US)
  Receive Date: 20190308
  Receipt Date: 20190308
  Transmission Date: 20190711
  Serious: Yes (Other)
  Sender: FDA-Public Use
  Company Number: None

PATIENT
  Age: 17 Year
  Sex: Male
  Weight: 85.6 kg

DRUGS (3)
  1. METHYLPREDNISOLONE. [Concomitant]
     Active Substance: METHYLPREDNISOLONE
     Dates: start: 20190307
  2. RITUXAN [Suspect]
     Active Substance: RITUXIMAB
     Indication: MULTIPLE SCLEROSIS
     Dosage: ?          OTHER FREQUENCY:EVERY 6 MONTHS;?
     Route: 041
     Dates: start: 20190307
  3. PEPCID [Concomitant]
     Active Substance: FAMOTIDINE
     Dates: start: 20190307

REACTIONS (5)
  - Urticaria [None]
  - Rash erythematous [None]
  - Pruritus generalised [None]
  - Pharyngeal erythema [None]
  - Throat tightness [None]

NARRATIVE: CASE EVENT DATE: 20190307
